FAERS Safety Report 11411934 (Version 1)
Quarter: 2015Q3

REPORT INFORMATION
  Report Type: Spontaneous
  Country: US (occurrence: US)
  Receive Date: 20150821
  Receipt Date: 20150821
  Transmission Date: 20151125
  Serious: No
  Sender: FDA-Public Use
  Company Number: US-ELI_LILLY_AND_COMPANY-US201112006742

PATIENT
  Age: 32 Year
  Sex: Female

DRUGS (4)
  1. HUMULIN N [Suspect]
     Active Substance: INSULIN HUMAN
     Dosage: 20 U, EACH MORNING
     Dates: start: 20110914
  2. HUMULIN N [Suspect]
     Active Substance: INSULIN HUMAN
     Dosage: 22 U, OTHER
     Dates: start: 20110914
  3. HUMULIN N [Suspect]
     Active Substance: INSULIN HUMAN
     Indication: TYPE 2 DIABETES MELLITUS
     Dosage: 20 U, EACH MORNING
     Dates: start: 20110914
  4. HUMULIN N [Suspect]
     Active Substance: INSULIN HUMAN
     Dosage: 22 U, OTHER
     Dates: start: 20110914

REACTIONS (2)
  - Exposure during pregnancy [Not Recovered/Not Resolved]
  - Injection site bruising [Unknown]

NARRATIVE: CASE EVENT DATE: 20110914
